FAERS Safety Report 7269904-9 (Version None)
Quarter: 2011Q1

REPORT INFORMATION
  Report Type: 
  Country: None (occurrence: None)
  Receive Date: 20110202
  Receipt Date: 20110121
  Transmission Date: 20110831
  Serious: Yes (Hospitalization, Other)
  Sender: FDA-Public Use
  Company Number: US-ROCHE-433853

PATIENT
  Sex: Female
  Weight: 47.6 kg

DRUGS (1)
  1. ACCUTANE [Suspect]
     Route: 048
     Dates: start: 20010927, end: 20020302

REACTIONS (17)
  - COLITIS ULCERATIVE [None]
  - DEPRESSION [None]
  - CROHN'S DISEASE [None]
  - ANAEMIA [None]
  - SOMNOLENCE [None]
  - DEHYDRATION [None]
  - INFLAMMATORY BOWEL DISEASE [None]
  - BLOOD TRIGLYCERIDES INCREASED [None]
  - BLOOD CHOLESTEROL INCREASED [None]
  - DIZZINESS [None]
  - ARTHRALGIA [None]
  - HEADACHE [None]
  - FATIGUE [None]
  - EYE PAIN [None]
  - COLITIS [None]
  - ANAL FISTULA [None]
  - BONE PAIN [None]
